FAERS Safety Report 5378316-4 (Version None)
Quarter: 2007Q3

REPORT INFORMATION
  Report Type: 
  Country: None (occurrence: None)
  Receive Date: 20070705
  Receipt Date: 20070629
  Transmission Date: 20080115
  Serious: Yes (Death)
  Sender: FDA-Public Use
  Company Number: BE-NOVOPROD-265118

PATIENT
  Age: 60 Year
  Sex: Female

DRUGS (3)
  1. NOVONORM [Suspect]
     Indication: INSULIN-REQUIRING TYPE II DIABETES MELLITUS
     Dosage: 3X2 MG
     Route: 048
     Dates: start: 20070618
  2. GLUCOPHAGE [Concomitant]
     Dosage: 3X850 MG
  3. BROMAZEPAM [Concomitant]

REACTIONS (1)
  - DEATH [None]
